FAERS Safety Report 8551987-7 (Version None)
Quarter: 2012Q3

REPORT INFORMATION
  Report Type: 
  Country: None (occurrence: None)
  Receive Date: 20120730
  Receipt Date: 20120726
  Transmission Date: 20120928
  Serious: Yes (Hospitalization, Other)
  Sender: FDA-Public Use
  Company Number: CA-ABBOTT-12P-028-0960863-00

PATIENT
  Age: 53 Year
  Sex: Male

DRUGS (2)
  1. DIVALPROEX SODIUM [Suspect]
     Indication: PRODUCT USED FOR UNKNOWN INDICATION
  2. DILANTIN [Suspect]
     Indication: PRODUCT USED FOR UNKNOWN INDICATION
     Route: 048

REACTIONS (7)
  - MOVEMENT DISORDER [None]
  - DYSARTHRIA [None]
  - SPEECH DISORDER [None]
  - CONVULSION [None]
  - IMPAIRED SELF-CARE [None]
  - LETHARGY [None]
  - TOXICITY TO VARIOUS AGENTS [None]
